FAERS Safety Report 8496872-4 (Version None)
Quarter: 2012Q3

REPORT INFORMATION
  Report Type: 
  Country: None (occurrence: None)
  Receive Date: 20120709
  Receipt Date: 20120626
  Transmission Date: 20120928
  Serious: Yes (Hospitalization)
  Sender: FDA-Public Use
  Company Number: JP-ELI_LILLY_AND_COMPANY-JP201110005084

PATIENT
  Age: 71 Year
  Sex: Female

DRUGS (2)
  1. FORTEO [Suspect]
     Dosage: UNK
     Route: 058
     Dates: start: 20110901
  2. FORTEO [Suspect]
     Route: 058

REACTIONS (4)
  - INJECTION SITE HAEMATOMA [None]
  - CEREBRAL INFARCTION [None]
  - URTICARIA [None]
  - BLOOD URIC ACID INCREASED [None]
